FAERS Safety Report 4756110-2 (Version None)
Quarter: 2005Q3

REPORT INFORMATION
  Report Type: 
  Country: None (occurrence: None)
  Receive Date: 20050825
  Receipt Date: 20050622
  Transmission Date: 20060218
  Serious: Yes (Life-Threatening)
  Sender: FDA-Public Use
  Company Number: WAES 0502USA00772

PATIENT
  Age: 61 Year
  Sex: Male
  Weight: 108.8633 kg

DRUGS (1)
  1. VYTORIN [Suspect]
     Indication: BLOOD CHOLESTEROL INCREASED
     Dosage: 10-20MG/DAILY/PO
     Route: 048
     Dates: start: 20041216, end: 20041216

REACTIONS (3)
  - BLOOD PRESSURE DECREASED [None]
  - DYSPNOEA [None]
  - THROAT TIGHTNESS [None]
